FAERS Safety Report 11590326 (Version 1)
Quarter: 2015Q4

REPORT INFORMATION
  Report Type: Report from Study
  Country: BR (occurrence: BR)
  Receive Date: 20151002
  Receipt Date: 20151002
  Transmission Date: 20160304
  Serious: Yes (Other)
  Sender: FDA-Public Use
  Company Number: BR-BAYER-2015-373896

PATIENT
  Sex: Female

DRUGS (2)
  1. BETAFERON [Suspect]
     Active Substance: INTERFERON BETA-1B
     Indication: MULTIPLE SCLEROSIS
     Dosage: 1 ML, QOD
     Route: 058
     Dates: start: 201203, end: 201506
  2. PARACETAMOL [Concomitant]
     Active Substance: ACETAMINOPHEN
     Indication: PROPHYLAXIS
     Dosage: 1 DF, QOD
     Route: 048

REACTIONS (6)
  - Impaired healing [Recovered/Resolved]
  - Injection site nodule [Not Recovered/Not Resolved]
  - Memory impairment [None]
  - Feeling abnormal [Recovered/Resolved]
  - Injection site ulcer [None]
  - Injection site rash [Not Recovered/Not Resolved]
